FAERS Safety Report 5476173-9 (Version None)
Quarter: 2007Q4

REPORT INFORMATION
  Report Type: 
  Country: None (occurrence: None)
  Receive Date: 20071003
  Receipt Date: 20070927
  Transmission Date: 20080405
  Serious: Yes (Hospitalization)
  Sender: FDA-Public Use
  Company Number: US-TYCO HEALTHCARE/MALLINCKRODT-T200701151

PATIENT

DRUGS (3)
  1. MD-GASTROVIEW [Suspect]
     Indication: COMPUTERISED TOMOGRAM
     Dosage: 1/2 OF THE PRODUCT
     Route: 048
     Dates: start: 20070914, end: 20070914
  2. MD-GASTROVIEW [Suspect]
     Dosage: OTHER HALF OF THE PRODUCT
     Route: 048
     Dates: start: 20070914, end: 20070914
  3. COUMADIN [Concomitant]
     Indication: ANTICOAGULANT THERAPY
     Dosage: UNK, QD
     Route: 048
     Dates: start: 20060101, end: 20070914

REACTIONS (18)
  - ABDOMINAL PAIN UPPER [None]
  - ABNORMAL FAECES [None]
  - ANOREXIA [None]
  - BURNING SENSATION [None]
  - CHEST DISCOMFORT [None]
  - CHILLS [None]
  - COLD SWEAT [None]
  - DIARRHOEA [None]
  - DRY MOUTH [None]
  - DYSPHAGIA [None]
  - DYSPNOEA [None]
  - HEART RATE INCREASED [None]
  - HEART RATE IRREGULAR [None]
  - INSOMNIA [None]
  - NAUSEA [None]
  - PHARYNGEAL OEDEMA [None]
  - SENSATION OF FOREIGN BODY [None]
  - WEIGHT DECREASED [None]
